FAERS Safety Report 22042217 (Version 1)
Quarter: 2023Q1

REPORT INFORMATION
  Report Type: Spontaneous
  Country: US (occurrence: None)
  Receive Date: 20230227
  Receipt Date: 20230227
  Transmission Date: 20230418
  Serious: Yes (Hospitalization)
  Sender: FDA-Public Use
  Company Number: US-MICRO LABS LIMITED-ML2023-01005

PATIENT
  Age: 6 Year
  Sex: Female

DRUGS (2)
  1. DIPHENHYDRAMINE HYDROCHLORIDE [Suspect]
     Active Substance: DIPHENHYDRAMINE HYDROCHLORIDE
     Indication: Anaphylactic reaction
  2. PREDNISOLONE [Suspect]
     Active Substance: PREDNISOLONE
     Indication: Anaphylactic reaction

REACTIONS (1)
  - Drug ineffective [Unknown]
